FAERS Safety Report 8877895 (Version 1)
Quarter: 2012Q4

REPORT INFORMATION
  Report Type: Spontaneous
  Country: GB (occurrence: None)
  Receive Date: 20121026
  Receipt Date: 20121026
  Transmission Date: 20130627
  Serious: Yes (Other)
  Sender: FDA-Public Use
  Company Number: DSA_60325_2012

PATIENT

DRUGS (5)
  1. FLUOROURACIL (FLUOROURACIL) [Suspect]
     Indication: ANAL CANCER
     Dosage: 1000 mg/m2 over 24 hours intravenous (not otherwise specified)
  2. MITOMYCIN [Suspect]
     Indication: ANAL CANCER
     Route: 040
  3. CISPLATIN [Suspect]
     Indication: ANAL CANCER
     Dosage: 60 mg/m2 over 4 hours intravenous (not otherwise specified)
  4. THERAPEUTIC RADIOPHARMACEUTICALS (THERAPEUTIC RADIOPHARMACEUTICALS) [Suspect]
     Indication: ANAL CANCER
     Dosage: 45 Gy in 25 daily fractions of 1.8 Gy; over 5 weeks
  5. CIPROFLOXACIN (UNKNOWN) [Concomitant]

REACTIONS (2)
  - Neutropenia [None]
  - Sepsis [None]
